FAERS Safety Report 4504052-X (Version None)
Quarter: 2004Q4

REPORT INFORMATION
  Report Type: 
  Country: None (occurrence: None)
  Receive Date: 20041115
  Receipt Date: 20041102
  Transmission Date: 20050328
  Serious: Yes (Other)
  Sender: FDA-Public Use
  Company Number: 2004086734

PATIENT
  Age: 67 Year
  Sex: Female
  Weight: 56.6996 kg

DRUGS (3)
  1. ROGAINE [Suspect]
     Indication: HYPOTRICHOSIS
     Dosage: 1ML, BID, TOPICAL
     Route: 061
     Dates: start: 20041101, end: 20041101
  2. ATORVASTATIN CALCIUM [Concomitant]
  3. MULTIVITAMINS (ASCORIC ACID, ERGOCALCIFEROL, FOLIC ACID, NICOTINAMIDE, [Concomitant]

REACTIONS (6)
  - DIZZINESS [None]
  - HAND FRACTURE [None]
  - HEAD INJURY [None]
  - JOINT DISLOCATION [None]
  - LOSS OF CONSCIOUSNESS [None]
  - OPEN FRACTURE [None]
